FAERS Safety Report 9891689 (Version 1)
Quarter: 2014Q1

REPORT INFORMATION
  Report Type: Spontaneous
  Country: US (occurrence: US)
  Receive Date: 20140212
  Receipt Date: 20140212
  Transmission Date: 20141002
  Serious: No
  Sender: FDA-Public Use
  Company Number: US-PFIZER INC-2014039472

PATIENT
  Age: 55 Year
  Sex: Female
  Weight: 77.1 kg

DRUGS (18)
  1. CHANTIX [Suspect]
     Indication: SMOKING CESSATION THERAPY
     Dosage: 0.5 MG, 1X/DAY
     Route: 048
  2. CHANTIX [Suspect]
     Dosage: UNK
     Route: 048
  3. ARMOUR THYROID [Concomitant]
     Dosage: UNK
  4. METFORMIN [Concomitant]
     Dosage: UNK
  5. GLIMEPIRIDE [Concomitant]
     Dosage: UNK
  6. PRAVASTATIN [Concomitant]
     Dosage: UNK
  7. ATENOLOL [Concomitant]
     Dosage: UNK
  8. MICARDIS [Concomitant]
     Dosage: UNK
  9. FLUOXETINE [Concomitant]
     Dosage: UNK
  10. PANTOPRAZOLE [Concomitant]
     Dosage: UNK
  11. VENTOLIN [Concomitant]
     Dosage: UNK
  12. LORATADINE [Concomitant]
     Dosage: UNK
  13. GABAPENTIN [Concomitant]
     Dosage: UNK
  14. MELOXICAM [Concomitant]
     Dosage: UNK
  15. CALCIUM [Concomitant]
     Dosage: UNK
  16. NOVOLOG [Concomitant]
     Dosage: UNK
  17. COLACE [Concomitant]
     Dosage: UNK
  18. VICTOZA [Concomitant]
     Dosage: UNK

REACTIONS (1)
  - Abnormal dreams [Unknown]
